FAERS Safety Report 17353839 (Version 1)
Quarter: 2020Q1

REPORT INFORMATION
  Report Type: Spontaneous
  Country: US (occurrence: US)
  Receive Date: 20200131
  Receipt Date: 20200131
  Transmission Date: 20200409
  Serious: No
  Sender: FDA-Public Use
  Company Number: US-MYLANLABS-2020M1007706

PATIENT
  Sex: Female
  Weight: 82 kg

DRUGS (2)
  1. ESTRADIOL. [Suspect]
     Active Substance: ESTRADIOL
     Indication: HORMONE REPLACEMENT THERAPY
     Dosage: UNK UNK, QW
     Route: 062
  2. VAGISIL                            /00104701/ [Concomitant]
     Dosage: UNK

REACTIONS (2)
  - Blood oestrogen increased [Recovered/Resolved]
  - Breast enlargement [Recovered/Resolved]
